FAERS Safety Report 6329241-3 (Version None)
Quarter: 2009Q3

REPORT INFORMATION
  Report Type: 
  Country: None (occurrence: None)
  Receive Date: 20090825
  Receipt Date: 20090825
  Transmission Date: 20100115
  Serious: No
  Sender: FDA-Public Use
  Company Number: None

PATIENT
  Age: 31 Year
  Sex: Female
  Weight: 88.72 kg

DRUGS (2)
  1. FLUOXETINE [Suspect]
     Indication: BIPOLAR I DISORDER
     Dosage: 60 MG EVERYDAY PO
     Route: 048
     Dates: start: 20090710, end: 20090803
  2. DULOXETINE [Suspect]
     Indication: BIPOLAR I DISORDER
     Dosage: 60 MG EVERYDAY PO
     Route: 048
     Dates: start: 20090408, end: 20090803

REACTIONS (12)
  - CONFUSIONAL STATE [None]
  - DIARRHOEA [None]
  - DYSARTHRIA [None]
  - GAIT DISTURBANCE [None]
  - HEADACHE [None]
  - HYPERHIDROSIS [None]
  - HYPERREFLEXIA [None]
  - NAUSEA [None]
  - RESTLESSNESS [None]
  - TACHYCARDIA [None]
  - TREMOR [None]
  - VOMITING [None]
